FAERS Safety Report 9108452 (Version 2)
Quarter: 2013Q1

REPORT INFORMATION
  Report Type: Spontaneous
  Country: MX (occurrence: MX)
  Receive Date: 20130222
  Receipt Date: 20130308
  Transmission Date: 20140127
  Serious: Yes (Other)
  Sender: FDA-Public Use
  Company Number: PHHY2013MX015313

PATIENT
  Age: 75 Year
  Sex: Female

DRUGS (3)
  1. FEMARA [Suspect]
     Indication: BREAST CANCER
     Dosage: 2.5 MG DAILY
     Route: 048
     Dates: start: 20120503, end: 20130204
  2. ONBREZ [Suspect]
     Indication: RESPIRATORY DISORDER
     Dosage: 1 DF, DAILY
     Dates: start: 20121107
  3. TIOTROPIUM BROMIDE [Concomitant]
     Indication: RESPIRATORY DISORDER
     Dosage: UNK UKN, UNK
     Route: 065

REACTIONS (1)
  - Metastases to bone [Not Recovered/Not Resolved]
